FAERS Safety Report 9458204 (Version 1)
Quarter: 2013Q3

REPORT INFORMATION
  Report Type: Spontaneous
  Country: FR (occurrence: FR)
  Receive Date: 20130814
  Receipt Date: 20130814
  Transmission Date: 20140515
  Serious: Yes (Other)
  Sender: FDA-Public Use
  Company Number: FR-PFIZER INC-2013234518

PATIENT
  Age: 60 Year
  Sex: Male

DRUGS (1)
  1. TRIATEC [Suspect]
     Indication: HEART VALVE REPLACEMENT
     Dosage: UNK
     Route: 048

REACTIONS (2)
  - Sudden onset of sleep [Unknown]
  - Somnolence [Unknown]
